FAERS Safety Report 18632601 (Version 1)
Quarter: 2020Q4

REPORT INFORMATION
  Report Type: Spontaneous
  Country: US (occurrence: US)
  Receive Date: 20201217
  Receipt Date: 20201217
  Transmission Date: 20210114
  Serious: Yes (Hospitalization)
  Sender: FDA-Public Use
  Company Number: None

PATIENT
  Sex: Female

DRUGS (3)
  1. ESBRIET [Suspect]
     Active Substance: PIRFENIDONE
     Indication: IDIOPATHIC PULMONARY FIBROSIS
     Route: 048
     Dates: start: 20190403
  2. MULTIVITAMIN [Concomitant]
     Active Substance: VITAMINS
  3. ALLEGRA ALRG [Concomitant]

REACTIONS (3)
  - Therapy interrupted [None]
  - Diarrhoea [None]
  - Knee arthroplasty [None]
